FAERS Safety Report 4329870-2 (Version None)
Quarter: 2004Q1

REPORT INFORMATION
  Report Type: 
  Country: None (occurrence: None)
  Receive Date: 20040329
  Receipt Date: 20040315
  Transmission Date: 20041129
  Serious: Yes (Death, Life-Threatening, Hospitalization, Other)
  Sender: FDA-Public Use
  Company Number: 2003191913JP

PATIENT
  Age: 83 Year
  Sex: Female
  Weight: 63 kg

DRUGS (3)
  1. AROMASIN [Suspect]
     Indication: BREAST CANCER
     Dosage: 25 MG, QD, ORAL
     Route: 048
     Dates: start: 20031210, end: 20031221
  2. FLUID INFUSION [Concomitant]
  3. OXYCONTIN [Concomitant]

REACTIONS (13)
  - ABDOMINAL PAIN UPPER [None]
  - BREAST CANCER [None]
  - CEREBRAL INFARCTION [None]
  - DEPRESSED LEVEL OF CONSCIOUSNESS [None]
  - DISSEMINATED INTRAVASCULAR COAGULATION [None]
  - MALIGNANT NEOPLASM PROGRESSION [None]
  - MELAENA [None]
  - METASTASES TO LYMPH NODES [None]
  - MYOCARDIAL INFARCTION [None]
  - PAIN EXACERBATED [None]
  - SINUS TACHYCARDIA [None]
  - TRANSIENT ISCHAEMIC ATTACK [None]
  - UPPER GASTROINTESTINAL HAEMORRHAGE [None]
